FAERS Safety Report 9425904 (Version 2)
Quarter: 2013Q3

REPORT INFORMATION
  Report Type: Spontaneous
  Country: CH (occurrence: CH)
  Receive Date: 20130729
  Receipt Date: 20130828
  Transmission Date: 20140515
  Serious: Yes (Hospitalization)
  Sender: FDA-Public Use
  Company Number: CH-B.I. PHARMACEUTICALS,INC./RIDGEFIELD-2013-AP-00600SI

PATIENT
  Age: 73 Year
  Sex: Female

DRUGS (8)
  1. PRADAXA [Suspect]
     Indication: ATRIAL FIBRILLATION
     Dosage: 220 MG
     Route: 048
     Dates: start: 20130703
  2. PRADAXA [Suspect]
     Indication: ATRIAL FLUTTER
  3. APROVEL [Concomitant]
  4. FLUDEX [Concomitant]
  5. NORVASC [Concomitant]
  6. AERIUS [Concomitant]
  7. VENTOLIN DISCUS [Concomitant]
  8. SERETIDE/FLUTICASONE PROPIONATE/SALMETEROLXINAFOATE [Concomitant]

REACTIONS (3)
  - Haematochezia [Recovered/Resolved]
  - Vertigo [Recovered/Resolved]
  - Haemoglobin decreased [Recovered/Resolved]
